FAERS Safety Report 18062843 (Version 1)
Quarter: 2020Q3

REPORT INFORMATION
  Report Type: Spontaneous
  Country: US (occurrence: US)
  Receive Date: 20200724
  Receipt Date: 20200724
  Transmission Date: 20201103
  Serious: Yes (Hospitalization, Other)
  Sender: FDA-Public Use
  Company Number: US-PFIZER INC-2020277369

PATIENT
  Age: 66 Year
  Sex: Male
  Weight: 67.57 kg

DRUGS (4)
  1. ABILIFY [Suspect]
     Active Substance: ARIPIPRAZOLE
     Dosage: 5 MG
     Dates: start: 202006
  2. KEPPRA [Concomitant]
     Active Substance: LEVETIRACETAM
     Dosage: UNK
  3. ABILIFY [Suspect]
     Active Substance: ARIPIPRAZOLE
     Indication: PRODUCT USED FOR UNKNOWN INDICATION
     Dosage: 10 MG
  4. DILANTIN [Suspect]
     Active Substance: PHENYTOIN
     Indication: PRODUCT USED FOR UNKNOWN INDICATION
     Dosage: UNK
     Dates: end: 2020

REACTIONS (12)
  - Gait inability [Unknown]
  - Gait disturbance [Unknown]
  - Blood sodium decreased [Not Recovered/Not Resolved]
  - Fall [Unknown]
  - Blood potassium decreased [Not Recovered/Not Resolved]
  - Disorientation [Unknown]
  - Confusional state [Unknown]
  - Tremor [Recovered/Resolved]
  - Seizure [Unknown]
  - Weight decreased [Not Recovered/Not Resolved]
  - Tardive dyskinesia [Unknown]
  - Dysarthria [Recovered/Resolved]

NARRATIVE: CASE EVENT DATE: 2019
